APPROVED DRUG PRODUCT: ESBRIET
Active Ingredient: PIRFENIDONE
Strength: 267MG
Dosage Form/Route: TABLET;ORAL
Application: N208780 | Product #001 | TE Code: AB
Applicant: LEGACY PHARMA INC
Approved: Jan 11, 2017 | RLD: Yes | RS: No | Type: RX

PATENTS:
Patent 7767700 | Expires: Dec 18, 2027
Patent 7566729 | Expires: Apr 22, 2029
Patent 8592462 | Expires: Apr 22, 2029
Patent 8778947 | Expires: Aug 30, 2033
Patent 8592462 | Expires: Apr 22, 2029
Patent 8592462 | Expires: Apr 22, 2029
Patent 8592462 | Expires: Apr 22, 2029
Patent 8592462 | Expires: Apr 22, 2029
Patent 7816383 | Expires: Jan 8, 2030
Patent 7910610 | Expires: Jan 8, 2030
Patent 8318780 | Expires: Jan 8, 2030
Patent 8318780 | Expires: Jan 8, 2030
Patent 7635707 | Expires: Apr 22, 2029
Patent 7635707 | Expires: Apr 22, 2029
Patent 8084475 | Expires: Jan 8, 2030
Patent 8084475 | Expires: Jan 8, 2030
Patent 8648098 | Expires: Jan 8, 2030
Patent 8648098 | Expires: Jan 8, 2030
Patent 8609701 | Expires: Apr 22, 2029
Patent 8609701 | Expires: Apr 22, 2029
Patent 8609701 | Expires: Apr 22, 2029
Patent 8609701 | Expires: Apr 22, 2029
Patent 8013002 | Expires: Jan 8, 2030
Patent 8383150 | Expires: May 10, 2028
Patent 8778947 | Expires: Aug 30, 2033
Patent 8592462 | Expires: Apr 22, 2029
Patent 7910610 | Expires: Jan 8, 2030
Patent 7816383 | Expires: Jan 8, 2030
Patent 8754109 | Expires: Jan 8, 2030
Patent 8592462 | Expires: Apr 22, 2029
Patent 8592462 | Expires: Apr 22, 2029
Patent 8609701 | Expires: Apr 22, 2029
Patent 8609701 | Expires: Apr 22, 2029
Patent 7635707 | Expires: Apr 22, 2029
Patent 7635707 | Expires: Apr 22, 2029
Patent 7566729 | Expires: Apr 22, 2029
Patent 8420674 | Expires: Dec 18, 2027
Patent 8013002 | Expires: Jan 8, 2030
Patent 7635707 | Expires: Apr 22, 2029
Patent 8592462 | Expires: Apr 22, 2029
Patent 8609701 | Expires: Apr 22, 2029
Patent 7635707 | Expires: Apr 22, 2029
Patent 10188637 | Expires: Mar 28, 2037